FAERS Safety Report 9005493 (Version 1)
Quarter: 2013Q1

REPORT INFORMATION
  Report Type: Spontaneous
  Country: US (occurrence: US)
  Receive Date: 20130109
  Receipt Date: 20130109
  Transmission Date: 20140127
  Serious: Yes (Death)
  Sender: FDA-Public Use
  Company Number: US-PFIZER INC-2013005899

PATIENT
  Age: 86 Year
  Sex: Male

DRUGS (8)
  1. VERAPAMIL HCL [Suspect]
     Dosage: UNK
  2. PRAZOSIN HCL [Suspect]
  3. FUROSEMIDE [Suspect]
  4. POTASSIUM CHLORIDE [Suspect]
  5. METOPROLOL [Suspect]
  6. METFORMIN [Suspect]
  7. OMEPRAZOLE [Suspect]
  8. GLYBURIDE [Suspect]

REACTIONS (1)
  - Medication error [Fatal]
